FAERS Safety Report 11544153 (Version 1)
Quarter: 2015Q3

REPORT INFORMATION
  Report Type: Spontaneous
  Country: DE (occurrence: DE)
  Receive Date: 20150924
  Receipt Date: 20150924
  Transmission Date: 20151125
  Serious: Yes (Hospitalization)
  Sender: FDA-Public Use
  Company Number: DE-DRREDDYS-GER/GER/15/0050688

PATIENT
  Age: 56 Year
  Sex: Female
  Weight: 75 kg

DRUGS (2)
  1. TERBINAFINE. [Suspect]
     Active Substance: TERBINAFINE
     Indication: ONYCHOMYCOSIS
     Route: 048
  2. LEVOTHYROXINE SODIUM. [Concomitant]
     Active Substance: LEVOTHYROXINE SODIUM
     Indication: HYPOTHYROIDISM
     Route: 048

REACTIONS (5)
  - Hepatitis cholestatic [Recovering/Resolving]
  - Hepatic enzyme increased [Recovering/Resolving]
  - Drug eruption [Recovering/Resolving]
  - Pruritus [Recovering/Resolving]
  - Jaundice [Recovering/Resolving]

NARRATIVE: CASE EVENT DATE: 20150827
